FAERS Safety Report 5123028-5 (Version None)
Quarter: 2006Q4

REPORT INFORMATION
  Report Type: 
  Country: None (occurrence: None)
  Receive Date: 20061009
  Receipt Date: 20060925
  Transmission Date: 20070319
  Serious: Yes (Hospitalization)
  Sender: FDA-Public Use
  Company Number: PHBS2006SE14750

PATIENT
  Age: 73 Year
  Sex: Female

DRUGS (2)
  1. FOTIL (NVO) [Suspect]
     Indication: GLAUCOMA
  2. OPTIMOL [Suspect]
     Indication: GLAUCOMA

REACTIONS (1)
  - SINUS BRADYCARDIA [None]
